FAERS Safety Report 5064262-2 (Version None)
Quarter: 2006Q3

REPORT INFORMATION
  Report Type: 
  Country: None (occurrence: None)
  Receive Date: 20060728
  Receipt Date: 20060717
  Transmission Date: 20061208
  Serious: Yes (Hospitalization)
  Sender: FDA-Public Use
  Company Number: NL-ABBOTT-06P-114-0338286-00

PATIENT
  Sex: Male
  Weight: 68 kg

DRUGS (7)
  1. KALETRA [Suspect]
     Indication: HIV INFECTION
     Dosage: 400/100MG, 2 IN 1 D
     Dates: start: 20040607
  2. LAMIVUDINE + ZIDOVUDINE [Suspect]
     Indication: HIV INFECTION
     Dosage: 300/150MG, 2 IN 1 D
     Route: 048
     Dates: start: 20060607
  3. LOPERAMIDE OXIDE [Concomitant]
     Indication: DRUG USE FOR UNKNOWN INDICATION
     Route: 048
     Dates: start: 20041207, end: 20050308
  4. LOPERAMIDE OXIDE [Concomitant]
     Dates: start: 20050309, end: 20060701
  5. CITALOPRAM HYDROBROMIDE [Concomitant]
     Indication: DRUG USE FOR UNKNOWN INDICATION
     Dates: start: 20041125, end: 20051001
  6. LOPERAMIDE HYDROCHLORIDE [Concomitant]
     Indication: DRUG USE FOR UNKNOWN INDICATION
     Dates: start: 20050309, end: 20050915
  7. TEMAZEPAM [Concomitant]
     Indication: DRUG USE FOR UNKNOWN INDICATION
     Dates: start: 20060716

REACTIONS (3)
  - MENINGITIS VIRAL [None]
  - NEUROBORRELIOSIS [None]
  - VOMITING [None]
